APPROVED DRUG PRODUCT: THIORIDAZINE HYDROCHLORIDE
Active Ingredient: THIORIDAZINE HYDROCHLORIDE
Strength: 100MG
Dosage Form/Route: TABLET;ORAL
Application: A088456 | Product #001
Applicant: ANI PHARMACEUTICALS INC
Approved: May 17, 1985 | RLD: No | RS: No | Type: DISCN